FAERS Safety Report 4830977-1 (Version None)
Quarter: 2005Q4

REPORT INFORMATION
  Report Type: 
  Country: None (occurrence: None)
  Receive Date: 20051114
  Receipt Date: 20051108
  Transmission Date: 20060501
  Serious: Yes (Hospitalization)
  Sender: FDA-Public Use
  Company Number: URSO 2005-014

PATIENT
  Age: 35 Year
  Sex: Female

DRUGS (10)
  1. URSODIOL [Suspect]
     Dosage: 600 MG, 900 MG PO
     Route: 048
     Dates: start: 20020223, end: 20020430
  2. URSODIOL [Suspect]
     Dosage: 600 MG, 900 MG PO
     Route: 048
     Dates: start: 20020501
  3. CHOLEBINE TABS (COLESTILAN) [Concomitant]
  4. (MAGNESIUM OXIDE) [Concomitant]
  5. MUCOSTA (REBAMIPIDE) [Concomitant]
  6. ALOSENN (SENNA) [Concomitant]
  7. BEZATOL SR (BEZAFIBRATE) [Concomitant]
  8. STRONGER NEO-MINOPHAGEN C (AMMONIUM GLYCYRRHIZINATE) [Concomitant]
  9. LIPITOR [Concomitant]
  10. PREDNISOLONE [Concomitant]

REACTIONS (15)
  - ALANINE AMINOTRANSFERASE INCREASED [None]
  - ASPARTATE AMINOTRANSFERASE INCREASED [None]
  - BILIRUBIN CONJUGATED INCREASED [None]
  - BLOOD ALBUMIN INCREASED [None]
  - BLOOD ALKALINE PHOSPHATASE INCREASED [None]
  - BLOOD BILIRUBIN INCREASED [None]
  - BLOOD CHOLESTEROL INCREASED [None]
  - BLOOD URINE PRESENT [None]
  - CHOLESTASIS [None]
  - CONCOMITANT DISEASE PROGRESSION [None]
  - CONDITION AGGRAVATED [None]
  - HAEMOGLOBIN ABNORMAL [None]
  - HEPATIC FIBROSIS [None]
  - HEPATIC FUNCTION ABNORMAL [None]
  - JAUNDICE [None]
